FAERS Safety Report 4902647-2 (Version None)
Quarter: 2006Q1

REPORT INFORMATION
  Report Type: 
  Country: None (occurrence: None)
  Receive Date: 20060207
  Receipt Date: 20060103
  Transmission Date: 20060701
  Serious: Yes (Other)
  Sender: FDA-Public Use
  Company Number: 200515068EU

PATIENT
  Age: 42 Year
  Sex: Male
  Weight: 80 kg

DRUGS (11)
  1. NICODERM [Suspect]
     Route: 062
     Dates: start: 20050901
  2. DIAZEPAM [Concomitant]
     Indication: ANXIETY
     Dosage: 10MG UNKNOWN
     Dates: start: 20030101
  3. LITHIUM [Concomitant]
     Dosage: 900MG UNKNOWN
     Dates: start: 20010101
  4. RANITIDINE HYDROCHLORIDE [Concomitant]
     Dosage: 300MG UNKNOWN
     Dates: start: 20010101
  5. SEMISODIUM VALPROATE [Concomitant]
     Dosage: 2G UNKNOWN
     Dates: start: 20010101
  6. BUPROPION HYDROCHLORIDE [Concomitant]
     Indication: DEPRESSION
     Dosage: 300MG UNKNOWN
     Dates: start: 20010101
  7. RISPERIDONE [Concomitant]
     Indication: PSYCHOTIC DISORDER
     Dosage: 5MG UNKNOWN
     Dates: start: 20010101
  8. BENZTROPINE MESYLATE [Concomitant]
     Indication: DRY MOUTH
     Dosage: .5MG UNKNOWN
     Dates: start: 20020101
  9. FLUPHENAZINE DECANOATE [Concomitant]
     Indication: DRUG USE FOR UNKNOWN INDICATION
     Dosage: 900MG UNKNOWN
     Dates: start: 20000101
  10. DIAZEPAM PRODES [Concomitant]
     Indication: DEPRESSION
     Dosage: 10MG UNKNOWN
     Dates: start: 20040101
  11. ANTI-PSYCHOTIC MEDICATION [Concomitant]

REACTIONS (11)
  - APPLICATION SITE ERYTHEMA [None]
  - BACK PAIN [None]
  - CHEST PAIN [None]
  - DEPRESSION [None]
  - DRUG INEFFECTIVE [None]
  - INTENTIONAL SELF-INJURY [None]
  - NICOTINE DEPENDENCE [None]
  - PAIN IN EXTREMITY [None]
  - PALPITATIONS [None]
  - SMOKER [None]
  - SUICIDAL IDEATION [None]
